FAERS Safety Report 6141263-4 (Version None)
Quarter: 2009Q1

REPORT INFORMATION
  Report Type: 
  Country: None (occurrence: None)
  Receive Date: 20090330
  Receipt Date: 20090330
  Transmission Date: 20090719
  Serious: No
  Sender: FDA-Public Use
  Company Number: None

PATIENT
  Sex: Male
  Weight: 74.8435 kg

DRUGS (2)
  1. DOXYCYCLINE [Suspect]
     Indication: CYST
     Dosage: 2 DAY PO MANY YEARS
     Route: 048
  2. DOXYCYCLINE [Suspect]
     Indication: PROPHYLAXIS
     Dosage: 2 DAY PO MANY YEARS
     Route: 048

REACTIONS (4)
  - ACNE [None]
  - DERMAL CYST [None]
  - DRUG INEFFECTIVE [None]
  - THERAPEUTIC RESPONSE UNEXPECTED WITH DRUG SUBSTITUTION [None]
